FAERS Safety Report 14068486 (Version 13)
Quarter: 2022Q4

REPORT INFORMATION
  Report Type: Spontaneous
  Country: US (occurrence: US)
  Receive Date: 20171010
  Receipt Date: 20221205
  Transmission Date: 20230113
  Serious: Yes (Hospitalization)
  Sender: FDA-Public Use
  Company Number: US-PFIZER INC-2017430392

PATIENT
  Age: 62 Year
  Sex: Female

DRUGS (2)
  1. METHOTREXATE SODIUM [Suspect]
     Active Substance: METHOTREXATE SODIUM
     Dosage: UNK
  2. ZOLINZA [Concomitant]
     Active Substance: VORINOSTAT
     Dosage: UNK

REACTIONS (7)
  - Drug hypersensitivity [Not Recovered/Not Resolved]
  - Nausea [Not Recovered/Not Resolved]
  - Vomiting [Not Recovered/Not Resolved]
  - Diarrhoea [Not Recovered/Not Resolved]
  - Rheumatoid nodule [Unknown]
  - Weight decreased [Unknown]
  - Speech disorder [Unknown]
